FAERS Safety Report 9084333 (Version 2)
Quarter: 2013Q1

REPORT INFORMATION
  Report Type: Report from Study
  Country: US (occurrence: US)
  Receive Date: 20130131
  Receipt Date: 20130315
  Transmission Date: 20140127
  Serious: Yes (Hospitalization)
  Sender: FDA-Public Use
  Company Number: US-ABBOTT-12P-163-1001658-00

PATIENT
  Sex: Female
  Weight: 81.72 kg

DRUGS (6)
  1. HUMIRA [Suspect]
     Indication: CROHN^S DISEASE
     Dates: start: 200808
  2. HUMIRA [Suspect]
  3. HUMIRA [Suspect]
  4. ESTROVEN [Concomitant]
     Indication: HORMONE REPLACEMENT THERAPY
  5. METHOTREXATE [Concomitant]
     Indication: PRODUCT USED FOR UNKNOWN INDICATION
     Route: 050
  6. VESICARE [Concomitant]
     Indication: URINARY TRACT DISORDER

REACTIONS (5)
  - Small intestinal obstruction [Unknown]
  - Crohn^s disease [Unknown]
  - Crohn^s disease [Unknown]
  - Injection site pain [Not Recovered/Not Resolved]
  - Incorrect dose administered [Unknown]
